FAERS Safety Report 6077481-3 (Version None)
Quarter: 2009Q1

REPORT INFORMATION
  Report Type: 
  Country: None (occurrence: None)
  Receive Date: 20090213
  Receipt Date: 20081210
  Transmission Date: 20090719
  Serious: No
  Sender: FDA-Public Use
  Company Number: A0759733A

PATIENT
  Age: 37 Year
  Sex: Female

DRUGS (2)
  1. TREXIMET [Suspect]
     Indication: MIGRAINE
     Dosage: 1TAB AS REQUIRED
     Route: 048
     Dates: start: 20081104, end: 20081208
  2. TOPAMAX [Concomitant]

REACTIONS (2)
  - INSOMNIA [None]
  - PHOTOPSIA [None]
